FAERS Safety Report 7239165-5 (Version None)
Quarter: 2011Q1

REPORT INFORMATION
  Report Type: 
  Country: None (occurrence: None)
  Receive Date: 20110121
  Receipt Date: 20020626
  Transmission Date: 20110831
  Serious: Yes (Other)
  Sender: FDA-Public Use
  Company Number: PHHY2002JP02357

PATIENT
  Age: 71 Year
  Sex: Female

DRUGS (12)
  1. LEVODOPA [Concomitant]
     Dosage: 1500 MG/DAY
  2. LEVODOPA [Concomitant]
     Dosage: 2000 MG /DAY
  3. BROMOCRIPTINE MESYLATE [Suspect]
     Dosage: 12.5 MG/DAY
  4. LEVODOPA [Concomitant]
     Dosage: 100 MG/DAY
  5. LEVODOPA [Concomitant]
     Dosage: 400 MG/DAY
     Dates: start: 19881101
  6. LEVODOPA [Concomitant]
     Dosage: 400 MG/DAY WAS (4-6 TIMES A DAY)
  7. MENESIT [Concomitant]
     Dosage: 25-50 MG, QD OR BID
     Route: 048
  8. NEODOPASOL [Concomitant]
     Dosage: 600 MG/DAY
     Route: 048
  9. AMANTADINE HCL [Concomitant]
     Dosage: 100 MG/DAY
  10. BROMOCRIPTINE MESYLATE [Suspect]
     Dosage: 7.5 MG/DAY
  11. MENESIT [Concomitant]
     Dosage: 100 MG, UNK
     Route: 048
  12. BROMOCRIPTINE MESYLATE [Suspect]
     Dosage: 15 MG/DAY

REACTIONS (4)
  - DYSTONIA [None]
  - EYELID OEDEMA [None]
  - NAUSEA [None]
  - DELUSION [None]
